FAERS Safety Report 12994148 (Version 2)
Quarter: 2016Q4

REPORT INFORMATION
  Report Type: Spontaneous
  Country: US (occurrence: US)
  Receive Date: 20161202
  Receipt Date: 20161228
  Transmission Date: 20170207
  Serious: Yes (Death, Other)
  Sender: FDA-Public Use
  Company Number: US-PFIZER INC-2016553001

PATIENT
  Age: 75 Year
  Sex: Female

DRUGS (2)
  1. SILDENAFIL CITRATE. [Suspect]
     Active Substance: SILDENAFIL CITRATE
     Dosage: UNK
  2. REMODULIN [Suspect]
     Active Substance: TREPROSTINIL
     Indication: HYPERTENSION
     Dosage: 0.00055 ?G/KG CONTINUOUS
     Route: 058
     Dates: start: 20161021, end: 20161111

REACTIONS (2)
  - Migraine [Unknown]
  - Death [Fatal]

NARRATIVE: CASE EVENT DATE: 201611
